FAERS Safety Report 18087891 (Version 1)
Quarter: 2020Q3

REPORT INFORMATION
  Report Type: Spontaneous
  Country: US (occurrence: US)
  Receive Date: 20200729
  Receipt Date: 20200729
  Transmission Date: 20201103
  Serious: No
  Sender: FDA-Public Use
  Company Number: US-APOTEX-2020AP014100

PATIENT
  Age: 11 Year
  Sex: Male
  Weight: 52.16 kg

DRUGS (19)
  1. AZELASTINE HYDROCHLORIDE;FLUTICASONE FUROATE [Concomitant]
     Active Substance: AZELASTINE HYDROCHLORIDE\FLUTICASONE FUROATE
     Indication: RHINITIS ALLERGIC
     Dosage: UNK UNK, PRN
     Route: 065
  2. RISPERDAL [Concomitant]
     Active Substance: RISPERIDONE
     Indication: NEUROPSYCHIATRIC SYNDROME
     Dosage: UNK
     Route: 065
  3. VISTARIL [HYDROXYZINE HYDROCHLORIDE] [Concomitant]
     Indication: NEUROPSYCHIATRIC SYNDROME
     Dosage: UNK
     Route: 065
  4. KEFLEX [Suspect]
     Active Substance: CEPHALEXIN
     Indication: NEUROPSYCHIATRIC SYNDROME
     Dosage: UNK
     Route: 065
  5. LEVOCETIRIZINE [Concomitant]
     Active Substance: LEVOCETIRIZINE
     Indication: RHINITIS ALLERGIC
     Dosage: UNK UNK, PRN
     Route: 065
  6. ADDERALL [Concomitant]
     Active Substance: AMPHETAMINE ASPARTATE\AMPHETAMINE SULFATE\DEXTROAMPHETAMINE SACCHARATE\DEXTROAMPHETAMINE SULFATE
     Indication: NEUROPSYCHIATRIC SYNDROME
     Dosage: UNK
     Route: 065
  7. PAXIL [Suspect]
     Active Substance: PAROXETINE HYDROCHLORIDE
     Indication: NEUROPSYCHIATRIC SYNDROME
     Dosage: UNK
     Route: 065
  8. MONTELUKAST [Concomitant]
     Active Substance: MONTELUKAST SODIUM
     Indication: RHINITIS ALLERGIC
     Dosage: UNK UNK, PRN
     Route: 065
  9. CATAPRES [Concomitant]
     Active Substance: CLONIDINE HYDROCHLORIDE
     Indication: NEUROPSYCHIATRIC SYNDROME
     Dosage: UNK
     Route: 065
  10. CELEXA [Concomitant]
     Active Substance: CITALOPRAM HYDROBROMIDE
     Indication: NEUROPSYCHIATRIC SYNDROME
     Dosage: UNK
     Route: 065
  11. ABILIFY [Concomitant]
     Active Substance: ARIPIPRAZOLE
     Indication: NEUROPSYCHIATRIC SYNDROME
     Dosage: UNK
     Route: 065
  12. TRILEPTAL [Concomitant]
     Active Substance: OXCARBAZEPINE
     Indication: NEUROPSYCHIATRIC SYNDROME
     Dosage: UNK
     Route: 065
  13. RITALIN LA [Concomitant]
     Active Substance: METHYLPHENIDATE HYDROCHLORIDE
     Indication: NEUROPSYCHIATRIC SYNDROME
     Dosage: UNK
     Route: 065
  14. GEODON [Concomitant]
     Active Substance: ZIPRASIDONE HYDROCHLORIDE\ZIPRASIDONE MESYLATE
     Indication: NEUROPSYCHIATRIC SYNDROME
     Dosage: UNK
     Route: 065
  15. BUSPAR [Suspect]
     Active Substance: BUSPIRONE HYDROCHLORIDE
     Indication: NEUROPSYCHIATRIC SYNDROME
     Dosage: UNK
     Route: 065
  16. FOCALIN [Concomitant]
     Active Substance: DEXMETHYLPHENIDATE HYDROCHLORIDE
     Indication: NEUROPSYCHIATRIC SYNDROME
     Dosage: UNK
     Route: 065
  17. ALBUTEROL [SALBUTAMOL SULFATE] [Concomitant]
     Active Substance: ALBUTEROL SULFATE
     Indication: ASTHMA
     Dosage: UNK UNK, PRN
     Route: 065
  18. TENEX [Concomitant]
     Active Substance: GUANFACINE HYDROCHLORIDE
     Indication: NEUROPSYCHIATRIC SYNDROME
     Dosage: UNK
     Route: 065
  19. AMANTADINE. [Concomitant]
     Active Substance: AMANTADINE HYDROCHLORIDE
     Indication: NEUROPSYCHIATRIC SYNDROME
     Dosage: UNK
     Route: 065

REACTIONS (3)
  - Irritability [Unknown]
  - Drug ineffective [Unknown]
  - Treatment failure [Unknown]
